FAERS Safety Report 9262574 (Version 1)
Quarter: 2013Q2

REPORT INFORMATION
  Report Type: Spontaneous
  Country: US (occurrence: US)
  Receive Date: 20130430
  Receipt Date: 20130430
  Transmission Date: 20140414
  Serious: Yes (Hospitalization)
  Sender: FDA-Public Use
  Company Number: US-BAYER-2013-052077

PATIENT
  Age: 20 Year
  Sex: Female
  Weight: 77 kg

DRUGS (1)
  1. YAZ [Suspect]

REACTIONS (2)
  - Superior sagittal sinus thrombosis [None]
  - Intracranial venous sinus thrombosis [None]
